FAERS Safety Report 7292961-0 (Version None)
Quarter: 2011Q1

REPORT INFORMATION
  Report Type: 
  Country: None (occurrence: None)
  Receive Date: 20110209
  Receipt Date: 20110209
  Transmission Date: 20110831
  Serious: No
  Sender: FDA-Public Use
  Company Number: None

PATIENT
  Age: 80 Year
  Sex: Female
  Weight: 72.5755 kg

DRUGS (1)
  1. TRAVATAN Z [Suspect]
     Indication: INTRAOCULAR PRESSURE INCREASED
     Dosage: ONE DROP EVERY EVENING INTRAOCULAR
     Route: 031
     Dates: start: 20110202, end: 20110205

REACTIONS (4)
  - EYELID OEDEMA [None]
  - PRURITUS [None]
  - OCULAR HYPERAEMIA [None]
  - EYE PAIN [None]
